FAERS Safety Report 16427957 (Version 1)
Quarter: 2019Q2

REPORT INFORMATION
  Report Type: Report from Study
  Country: SE (occurrence: SE)
  Receive Date: 20190613
  Receipt Date: 20190613
  Transmission Date: 20190711
  Serious: Yes (Other)
  Sender: FDA-Public Use
  Company Number: SE-JNJFOC-20190608256

PATIENT

DRUGS (7)
  1. DOXORUBICIN HYDROCHLORIDE. [Suspect]
     Active Substance: DOXORUBICIN HYDROCHLORIDE
     Indication: CHRONIC LYMPHOCYTIC LEUKAEMIA
     Route: 065
  2. BENDAMUSTINE [Suspect]
     Active Substance: BENDAMUSTINE
     Indication: CHRONIC LYMPHOCYTIC LEUKAEMIA
     Route: 065
  3. PREDNISONE. [Suspect]
     Active Substance: PREDNISONE
     Indication: CHRONIC LYMPHOCYTIC LEUKAEMIA
     Route: 065
  4. CYCLOPHOSPHAMIDE. [Suspect]
     Active Substance: CYCLOPHOSPHAMIDE
     Indication: CHRONIC LYMPHOCYTIC LEUKAEMIA
     Route: 065
  5. VINCRISTINE [Suspect]
     Active Substance: VINCRISTINE
     Indication: CHRONIC LYMPHOCYTIC LEUKAEMIA
     Route: 065
  6. RITUXIMAB. [Suspect]
     Active Substance: RITUXIMAB
     Indication: CHRONIC LYMPHOCYTIC LEUKAEMIA
     Route: 065
  7. ASA [Concomitant]
     Active Substance: ASPIRIN
     Route: 065

REACTIONS (7)
  - Acute myeloid leukaemia [Unknown]
  - Infection [Unknown]
  - Product use in unapproved indication [Unknown]
  - Myelodysplastic syndrome [Unknown]
  - Basal cell carcinoma [Unknown]
  - Neoplasm [Unknown]
  - Off label use [Unknown]
